FAERS Safety Report 18462447 (Version 1)
Quarter: 2020Q4

REPORT INFORMATION
  Report Type: Spontaneous
  Country: GB (occurrence: GB)
  Receive Date: 20201104
  Receipt Date: 20201104
  Transmission Date: 20210114
  Serious: Yes (Other)
  Sender: FDA-Public Use
  Company Number: GB-SHIRE-GB202030582

PATIENT

DRUGS (1)
  1. SATIVEX [Suspect]
     Active Substance: NABIXIMOLS
     Indication: PRODUCT USED FOR UNKNOWN INDICATION
     Dosage: 6 ACTUATION, 2X/DAY:BID
     Route: 002
     Dates: start: 20200828

REACTIONS (10)
  - Dry mouth [Recovered/Resolved]
  - Depressed level of consciousness [Recovered/Resolved]
  - Feeling abnormal [Unknown]
  - Paraesthesia [Recovered/Resolved]
  - Arthralgia [Unknown]
  - Memory impairment [Recovered/Resolved]
  - Product use issue [Unknown]
  - Dizziness [Recovered/Resolved]
  - Limb discomfort [Unknown]
  - Balance disorder [Unknown]

NARRATIVE: CASE EVENT DATE: 20200827
